FAERS Safety Report 4873107-2 (Version None)
Quarter: 2005Q4

REPORT INFORMATION
  Report Type: 
  Country: None (occurrence: None)
  Receive Date: 20051201
  Receipt Date: 20050715
  Transmission Date: 20060501
  Serious: No
  Sender: FDA-Public Use
  Company Number: 2005PV000406

PATIENT
  Age: 63 Year
  Sex: Male
  Weight: 107.0489 kg

DRUGS (12)
  1. BYETTA [Suspect]
     Indication: DIABETES MELLITUS NON-INSULIN-DEPENDENT
     Dosage: SEE IMAGE
     Route: 058
     Dates: start: 20050701, end: 20050801
  2. BYETTA [Suspect]
     Indication: DIABETES MELLITUS NON-INSULIN-DEPENDENT
     Dosage: SEE IMAGE
     Route: 058
     Dates: start: 20050801, end: 20050801
  3. BYETTA [Suspect]
     Indication: DIABETES MELLITUS NON-INSULIN-DEPENDENT
     Dosage: SEE IMAGE
     Route: 058
     Dates: start: 20050816, end: 20050801
  4. OLMESARTAN MEDOXOMIL [Concomitant]
  5. EZETIMIBE [Concomitant]
  6. HYDROCHLOROTHIAZIDE [Concomitant]
  7. ZESTRIL [Concomitant]
  8. ALLOPURINOL [Concomitant]
  9. YEAST [Concomitant]
  10. FOLIC ACID [Concomitant]
  11. GLUCOPHAGE [Concomitant]
  12. POTASSIUM [Concomitant]

REACTIONS (6)
  - BLOOD GLUCOSE INCREASED [None]
  - INJECTION SITE PAIN [None]
  - NAUSEA [None]
  - PRURITUS [None]
  - URTICARIA [None]
  - WEIGHT DECREASED [None]
